FAERS Safety Report 20741719 (Version 1)
Quarter: 2022Q2

REPORT INFORMATION
  Report Type: Spontaneous
  Country: US (occurrence: None)
  Receive Date: 20220423
  Receipt Date: 20220423
  Transmission Date: 20220721
  Serious: No
  Sender: FDA-Public Use
  Company Number: 2022A144082

PATIENT
  Age: 19415 Day
  Sex: Female
  Weight: 90.7 kg

DRUGS (1)
  1. BUDESONIDE\FORMOTEROL\GLYCOPYRRONIUM [Suspect]
     Active Substance: BUDESONIDE\FORMOTEROL\GLYCOPYRRONIUM
     Indication: COVID-19
     Dosage: 160/9/4.8MCG, 120 ACTUATION INHALER, TWO INHALATIONS
     Route: 055
     Dates: start: 202202

REACTIONS (8)
  - Dyspnoea [Not Recovered/Not Resolved]
  - Throat tightness [Unknown]
  - Stress [Unknown]
  - Chest discomfort [Unknown]
  - Device use issue [Unknown]
  - Product dose omission issue [Unknown]
  - Drug dose omission by device [Unknown]
  - Device malfunction [Unknown]

NARRATIVE: CASE EVENT DATE: 20220324
